FAERS Safety Report 12145493 (Version 1)
Quarter: 2016Q1

REPORT INFORMATION
  Report Type: Spontaneous
  Country: GB (occurrence: GB)
  Receive Date: 20160304
  Receipt Date: 20160304
  Transmission Date: 20160526
  Serious: Yes (Other)
  Sender: FDA-Public Use
  Company Number: GB-TEVA-639624ACC

PATIENT
  Age: 48 Year
  Sex: Female
  Weight: 70 kg

DRUGS (2)
  1. NITROFURANTOIN. [Suspect]
     Active Substance: NITROFURANTOIN
     Dates: start: 20151207
  2. CO-AMOXICLAV [Concomitant]
     Active Substance: AMOXICILLIN\CLAVULANIC ACID
     Indication: URINARY TRACT INFECTION
     Dosage: 3 DOSAGE FORMS DAILY;
     Dates: start: 20151210, end: 20151217

REACTIONS (6)
  - Somnolence [Unknown]
  - Influenza like illness [Unknown]
  - Decreased appetite [Unknown]
  - Malaise [Unknown]
  - Pain [Unknown]
  - Wheezing [Unknown]

NARRATIVE: CASE EVENT DATE: 20160216
